FAERS Safety Report 14300336 (Version 13)
Quarter: 2019Q3

REPORT INFORMATION
  Report Type: Report from Study
  Country: BG (occurrence: BG)
  Receive Date: 20171219
  Receipt Date: 20190913
  Transmission Date: 20191004
  Serious: Yes (Hospitalization)
  Sender: FDA-Public Use
  Company Number: BG-ROCHE-2042367

PATIENT
  Age: 59 Year
  Sex: Male
  Weight: 83 kg

DRUGS (17)
  1. ATEZOLIZUMAB. [Suspect]
     Active Substance: ATEZOLIZUMAB
     Indication: SMALL CELL LUNG CANCER
     Dosage: DAY 01 CYCLE 01 ON DAY 1 OF EACH 21-DAY CYCLE?INFUSION STARTED AT 14:15 AND ENDED AT 15:15?ON 14/NOV
     Route: 042
     Dates: start: 20171024
  2. ETOPOSIDE. [Suspect]
     Active Substance: ETOPOSIDE
     Dosage: DAY 03 CYCLE 03?START TIME OF INFUSION: 11:05 END: 12:15 (INFUSION WAS COMPLETED WITHOUT INTERRUPTIO
     Route: 042
     Dates: start: 20171207
  3. CARBOPLATIN. [Suspect]
     Active Substance: CARBOPLATIN
     Route: 042
     Dates: start: 20171114
  4. NADROPARIN CALCIUM [Concomitant]
     Active Substance: NADROPARIN CALCIUM
     Indication: DEEP VEIN THROMBOSIS
     Route: 058
     Dates: start: 20171212
  5. ETOPOSIDE. [Suspect]
     Active Substance: ETOPOSIDE
     Indication: SMALL CELL LUNG CANCER
     Dosage: DAY 1 CYCLE 1, ONCE DAILY ON DAYS 1, 2 AND 3 OF EACH 21 DAY CYCLE?START TIME OF INFUSION: 12:20 END:
     Route: 042
     Dates: start: 20171024
  6. CARBOPLATIN. [Suspect]
     Active Substance: CARBOPLATIN
     Route: 042
     Dates: start: 20180103
  7. CHLOPHADON [Concomitant]
     Indication: HYPERTENSION
     Route: 048
     Dates: start: 201608
  8. FLUOCINOLONE ACETONIDE. [Concomitant]
     Active Substance: FLUOCINOLONE ACETONIDE
     Indication: PHLEBITIS
     Route: 061
     Dates: start: 20171119, end: 20171128
  9. NIMESULIDE [Concomitant]
     Active Substance: NIMESULIDE
     Indication: PHLEBITIS
     Route: 048
     Dates: start: 20171119, end: 20171128
  10. CARBOPLATIN. [Suspect]
     Active Substance: CARBOPLATIN
     Indication: SMALL CELL LUNG CANCER
     Dosage: DAY 01 CYCLE 01 ON DAY 1 OF EACH 21-DAY CYCLE?START TIME OF INFUSION: 11:105 END: 12:10, METHOD: COC
     Route: 042
     Dates: start: 20171024
  11. ONDANSETRON [Concomitant]
     Active Substance: ONDANSETRON
     Route: 042
     Dates: start: 20171205, end: 20171207
  12. BLINDED TRILACICLIB [Suspect]
     Active Substance: TRILACICLIB
     Indication: SMALL CELL LUNG CANCER
     Dosage: DAY 01 CYCLE 01, ONCE DAILY ON DAYS 1, 2 AND 3 OF EACH 21 DAY CYCLE (AS PER PROTOCOL)?INFUSION START
     Route: 042
     Dates: start: 20171024
  13. BLINDED TRILACICLIB [Suspect]
     Active Substance: TRILACICLIB
     Dosage: DAY 03 CYCLE 03?INFUSION STARTED AT 09:45 AND ENDED AT 10:35?TOTAL VOLUME CONSUMED: 250 ML (INFUSION
     Route: 042
     Dates: start: 20171207
  14. CARBOPLATIN. [Suspect]
     Active Substance: CARBOPLATIN
     Route: 042
     Dates: start: 20171205
  15. HYDROXYZINE HYDROCHLORIDE. [Concomitant]
     Active Substance: HYDROXYZINE HYDROCHLORIDE
     Indication: INSOMNIA
     Route: 048
     Dates: start: 20171017
  16. ONDANSETRON [Concomitant]
     Active Substance: ONDANSETRON
     Indication: PROPHYLAXIS
     Route: 042
     Dates: start: 20171114, end: 20171116
  17. NADROPARIN CALCIUM [Concomitant]
     Active Substance: NADROPARIN CALCIUM
     Indication: PROPHYLAXIS
     Route: 058
     Dates: start: 20171205, end: 20171207

REACTIONS (1)
  - Deep vein thrombosis [Recovered/Resolved]

NARRATIVE: CASE EVENT DATE: 20171212
